FAERS Safety Report 5310052-2 (Version None)
Quarter: 2007Q2

REPORT INFORMATION
  Report Type: 
  Country: None (occurrence: None)
  Receive Date: 20070427
  Receipt Date: 20070423
  Transmission Date: 20071010
  Serious: Yes (Hospitalization)
  Sender: FDA-Public Use
  Company Number: JP-JPN-A200701473

PATIENT
  Age: 74 Year
  Sex: Female
  Weight: 53 kg

DRUGS (16)
  1. VALTREX [Suspect]
     Indication: HERPES ZOSTER
     Dosage: 1000MG THREE TIMES PER DAY
     Route: 048
     Dates: start: 20070327, end: 20070327
  2. DEPAS [Concomitant]
     Indication: INSOMNIA
     Dosage: .5G PER DAY
     Route: 048
  3. LENDORMIN [Concomitant]
     Indication: INSOMNIA
     Dosage: .25G PER DAY
     Route: 048
  4. SENNARIDE [Concomitant]
     Indication: CONSTIPATION
     Route: 048
  5. TAKEPRON [Concomitant]
     Route: 048
  6. DIOVAN [Concomitant]
     Indication: HYPERTENSION
     Route: 048
  7. UNKNOWN MEDICATION [Concomitant]
     Indication: PRURITUS
     Route: 048
  8. GASTROM [Concomitant]
     Indication: GASTRITIS
     Dosage: 3G PER DAY
     Route: 048
  9. RENAGEL [Concomitant]
     Indication: BLOOD PHOSPHORUS INCREASED
     Route: 048
  10. ALOSENN [Concomitant]
     Indication: CONSTIPATION
     Dosage: 1G PER DAY
     Route: 048
  11. ESPO [Concomitant]
     Route: 042
  12. OXAROL [Concomitant]
     Indication: OSTEOSIS
     Dosage: 5MCG PER DAY
     Route: 042
  13. LOXONIN [Concomitant]
     Indication: HERPES ZOSTER
     Route: 048
     Dates: start: 20070327, end: 20070328
  14. CYANOCOBALAMIN [Concomitant]
     Indication: TRIGEMINAL NEURALGIA
     Dosage: 1500MG PER DAY
     Route: 048
     Dates: start: 20070327
  15. SELBEX [Concomitant]
     Indication: GASTRITIS
     Route: 048
     Dates: start: 20070327, end: 20070328
  16. ZOVIRAX [Concomitant]
     Route: 061
     Dates: start: 20070330

REACTIONS (6)
  - ABNORMAL BEHAVIOUR [None]
  - AMNESIA [None]
  - DIZZINESS [None]
  - DYSARTHRIA [None]
  - HALLUCINATION [None]
  - MUSCULAR WEAKNESS [None]
